FAERS Safety Report 24647634 (Version 1)
Quarter: 2024Q4

REPORT INFORMATION
  Report Type: Spontaneous
  Country: FR (occurrence: FR)
  Receive Date: 20241121
  Receipt Date: 20241121
  Transmission Date: 20250115
  Serious: Yes (Death, Hospitalization)
  Sender: FRESENIUS KABI
  Company Number: None

PATIENT
  Age: 24 Year
  Sex: Male
  Weight: 133 kg

DRUGS (16)
  1. ACETAMINOPHEN [Suspect]
     Active Substance: ACETAMINOPHEN
     Indication: Pain
     Route: 042
  2. FLUCONAZOLE [Suspect]
     Active Substance: FLUCONAZOLE
     Indication: Antibiotic therapy
     Route: 048
     Dates: start: 20240509
  3. ERTAPENEM SODIUM [Suspect]
     Active Substance: ERTAPENEM SODIUM
     Indication: Antibiotic therapy
     Route: 042
     Dates: start: 20240522
  4. PAROXETINE HYDROCHLORIDE [Suspect]
     Active Substance: PAROXETINE HYDROCHLORIDE
     Indication: Flat affect
     Route: 048
  5. PANTOPRAZOLE [Suspect]
     Active Substance: PANTOPRAZOLE
     Indication: Ulcer
     Route: 042
     Dates: start: 20240409
  6. FUROSEMIDE [Suspect]
     Active Substance: FUROSEMIDE
     Indication: Anuria
     Route: 042
     Dates: start: 20240503
  7. BISOPROLOL (FUMARATE) [BISOPROLOL (FUMARATE)] [Concomitant]
     Indication: Product used for unknown indication
  8. ASPIRIN [Concomitant]
     Active Substance: ASPIRIN
     Indication: Product used for unknown indication
  9. CONTRAMAL 100 mg/2 ml, solution for injection [TRAMADOL CHLORHYDRATE]. [Concomitant]
     Indication: Product used for unknown indication
  10. ONDANSETRON [Concomitant]
     Active Substance: ONDANSETRON
     Indication: Product used for unknown indication
  11. METOCLOPRAMIDE [METOCLOPRAMIDE] [Concomitant]
     Indication: Product used for unknown indication
  12. PHLOROGLUCINOL HYDRATE [PHLOROGLUCINOL HYDRATE] [Concomitant]
     Indication: Product used for unknown indication
  13. PHLOROGLUCINOL (PHLOROGLUCINOL TRIMETHYL ETHER) [Concomitant]
     Indication: Product used for unknown indication
  14. DARBEPOETIN ALFA ((MAMMAL/HAMSTER/CELLS CHO)) [Concomitant]
     Indication: Product used for unknown indication
  15. HEPARIN CALCIUM [HEPARIN CALCIUM] [Concomitant]
     Indication: Product used for unknown indication
  16. NICOTINE [NICOTINE] [Concomitant]
     Indication: Product used for unknown indication

REACTIONS (3)
  - Anaemia [Fatal]
  - Neutropenia [Fatal]
  - Bone marrow failure [Fatal]

NARRATIVE: CASE EVENT DATE: 20240528
